FAERS Safety Report 23144821 (Version 4)
Quarter: 2024Q4

REPORT INFORMATION
  Report Type: Spontaneous
  Country: US (occurrence: US)
  Receive Date: 20231103
  Receipt Date: 20241230
  Transmission Date: 20250115
  Serious: Yes (Hospitalization, Other)
  Sender: BAYER HEALTHCARE PHARMACEUTICALS INC.
  Company Number: US-BAYER-2023A152683

PATIENT
  Age: 15 Year
  Sex: Male

DRUGS (5)
  1. JIVI [Suspect]
     Active Substance: DAMOCTOCOG ALFA PEGOL
     Indication: Factor VIII deficiency
     Dosage: UNK
     Dates: start: 20231024, end: 20231024
  2. JIVI [Suspect]
     Active Substance: DAMOCTOCOG ALFA PEGOL
     Indication: Factor VIII deficiency
     Dosage: JIVI 500/1000IU: INFUSE~ 500/1000 UNITS
     Route: 042
     Dates: start: 201702
  3. HEMLIBRA [Concomitant]
     Active Substance: EMICIZUMAB-KXWH
  4. CELECOXIB [Concomitant]
     Active Substance: CELECOXIB
  5. ALTUVIIIO [Concomitant]
     Active Substance: EFANESOCTOCOG ALFA

REACTIONS (10)
  - Headache [None]
  - Paraesthesia [None]
  - Hyperhidrosis [None]
  - Feeling cold [None]
  - Hypotension [Recovered/Resolved]
  - Chest pain [Recovered/Resolved]
  - Insomnia [None]
  - Inappropriate schedule of product administration [None]
  - Pain in extremity [None]
  - Heart rate increased [None]

NARRATIVE: CASE EVENT DATE: 20231024
